FAERS Safety Report 8991131 (Version 1)
Quarter: 2012Q4

REPORT INFORMATION
  Report Type: Spontaneous
  Country: US (occurrence: None)
  Receive Date: 20121227
  Receipt Date: 20121227
  Transmission Date: 20130627
  Serious: No
  Sender: FDA-Public Use
  Company Number: None

PATIENT
  Age: 82 Year
  Sex: Female

DRUGS (1)
  1. AFINITOR [Suspect]
     Indication: RENAL CANCER
     Dosage: 10 PO QD
     Route: 048
     Dates: start: 20120416

REACTIONS (4)
  - Cough [None]
  - Respiratory disorder [None]
  - Sleep disorder due to general medical condition, insomnia type [None]
  - Rash [None]
